FAERS Safety Report 22972658 (Version 3)
Quarter: 2023Q4

REPORT INFORMATION
  Report Type: Report from Study
  Country: CN (occurrence: CN)
  Receive Date: 20230922
  Receipt Date: 20231127
  Transmission Date: 20240110
  Serious: Yes (Hospitalization)
  Sender: FDA-Public Use
  Company Number: CN-JNJFOC-20230927867

PATIENT
  Age: 67 Year
  Sex: Female
  Weight: 50 kg

DRUGS (6)
  1. DARATUMUMAB [Suspect]
     Active Substance: DARATUMUMAB
     Indication: Plasma cell myeloma
     Dosage: MOST RECENT DOSE 05-SEP-2023
     Route: 058
     Dates: start: 20230905
  2. DEXAMETHASONE [Suspect]
     Active Substance: DEXAMETHASONE
     Indication: Plasma cell myeloma
     Route: 048
     Dates: start: 20230905, end: 20230905
  3. POMALIDOMIDE [Suspect]
     Active Substance: POMALIDOMIDE
     Indication: Plasma cell myeloma
     Dosage: MOST RECENT DOSE ON 12-SEP-2023
     Route: 065
     Dates: start: 20230905
  4. LOXOPROFEN [Concomitant]
     Active Substance: LOXOPROFEN
     Indication: Bone pain
     Route: 048
     Dates: start: 20230911
  5. OMEPRAZOLE [Concomitant]
     Active Substance: OMEPRAZOLE
     Indication: Gastrointestinal disorder therapy
     Dosage: ENTERIC-COATED
     Route: 048
     Dates: start: 20230911
  6. LEVOTHYROXINE SODIUM [Concomitant]
     Active Substance: LEVOTHYROXINE SODIUM
     Indication: Central hypothyroidism
     Route: 048

REACTIONS (2)
  - Myelosuppression [Not Recovered/Not Resolved]
  - Pneumonia [Recovering/Resolving]

NARRATIVE: CASE EVENT DATE: 20230913
